FAERS Safety Report 10036454 (Version 1)
Quarter: 2014Q1

REPORT INFORMATION
  Report Type: Spontaneous
  Country: SE (occurrence: SE)
  Receive Date: 20140326
  Receipt Date: 20140326
  Transmission Date: 20141002
  Serious: Yes (Other)
  Sender: FDA-Public Use
  Company Number: PHHY2014SE032024

PATIENT
  Age: 14 Year
  Sex: Female

DRUGS (2)
  1. CARBOPLATIN [Suspect]
     Indication: CNS GERMINOMA
     Dosage: 1.2 G/M2
  2. IFOSFAMIDE [Suspect]
     Indication: CNS GERMINOMA
     Dosage: 18 G/M2

REACTIONS (1)
  - Ovarian disorder [Unknown]
